FAERS Safety Report 21161458 (Version 1)
Quarter: 2022Q3

REPORT INFORMATION
  Report Type: Spontaneous
  Country: NL (occurrence: NL)
  Receive Date: 20220802
  Receipt Date: 20220802
  Transmission Date: 20221027
  Serious: Yes (Life-Threatening, Hospitalization)
  Sender: FDA-Public Use
  Company Number: None

PATIENT
  Age: 82 Year
  Sex: Male
  Weight: 87.6 kg

DRUGS (7)
  1. RITUXIMAB [Suspect]
     Active Substance: RITUXIMAB
     Dosage: ONCE PER DAY 800 MG
     Dates: start: 20220707
  2. DI-ADRESON-F [PREDNISOLONE ACETATE] [Concomitant]
     Route: 051
  3. DI-ADRESON-F [PREDNISOLONE ACETATE] [Concomitant]
     Dosage: UNK
  4. CHLORAMBUCIL [Concomitant]
     Active Substance: CHLORAMBUCIL
  5. VEPESID [Concomitant]
     Active Substance: ETOPOSIDE
  6. LOMUSTINE [Concomitant]
     Active Substance: LOMUSTINE
  7. CLEMASTINE FUMARATE [Concomitant]
     Active Substance: CLEMASTINE FUMARATE
     Route: 051

REACTIONS (2)
  - Pyrexia [Not Recovered/Not Resolved]
  - Neutropenia [Not Recovered/Not Resolved]

NARRATIVE: CASE EVENT DATE: 20220718
